FAERS Safety Report 9432412 (Version 2)
Quarter: 2013Q3

REPORT INFORMATION
  Report Type: Spontaneous
  Country: GB (occurrence: GB)
  Receive Date: 20130729
  Receipt Date: 20130815
  Transmission Date: 20140515
  Serious: Yes (Death, Other)
  Sender: FDA-Public Use
  Company Number: FK201302698

PATIENT
  Age: 48 Year
  Sex: Female

DRUGS (12)
  1. ONDANSETRON [Suspect]
     Indication: PRODUCT USED FOR UNKNOWN INDICATION
     Dates: start: 20120626
  2. CITALOPRAM (CITALOPRAM) [Suspect]
     Indication: PRODUCT USED FOR UNKNOWN INDICATION
     Route: 048
  3. BECONASE (BECLOMETASONE DIPROPIONATE) [Concomitant]
  4. CHLORDIAZEPOXIDE (CHLORDIAZEPOXIDE) (CHLORDIAZEPOXIDE) [Concomitant]
  5. CHLORPHENAMINE (CHLORPHENAMINE) [Concomitant]
  6. LEVOTHYROXINE (LEVOTHYROXINE) [Concomitant]
  7. LOPERAMIDE (LOPERAMIDE) [Concomitant]
  8. OMEPRAZOLE (OMEPRAZOLE) [Concomitant]
  9. ORAMORPH (MORPHINE SULFATE) [Concomitant]
  10. PARACETAMOL (PARACETAMOL) [Concomitant]
  11. SALBUTAMOL (SALBUTAMOL) [Concomitant]
  12. ZOPICLONE (ZOPICLONE) [Concomitant]

REACTIONS (16)
  - C-reactive protein increased [None]
  - Hepatic steatosis [None]
  - Hallucination [None]
  - Cerebral ischaemia [None]
  - Psychiatric symptom [None]
  - Pulmonary oedema [None]
  - Tremor [None]
  - Vomiting [None]
  - Torsade de pointes [None]
  - Diarrhoea [None]
  - Electrolyte imbalance [None]
  - Hypokalaemia [None]
  - Sudden death [None]
  - Cardiac disorder [None]
  - Respiratory disorder [None]
  - Torsade de pointes [None]
